FAERS Safety Report 9465075 (Version 2)
Quarter: 2013Q3

REPORT INFORMATION
  Report Type: Spontaneous
  Country: JP (occurrence: JP)
  Receive Date: 20130819
  Receipt Date: 20130912
  Transmission Date: 20140515
  Serious: Yes (Disabling)
  Sender: FDA-Public Use
  Company Number: JP-GILEAD-2013-0081574

PATIENT
  Age: 66 Year
  Sex: Female

DRUGS (4)
  1. AMBRISENTAN [Suspect]
     Indication: PULMONARY HYPERTENSION
     Dosage: 5MG PER DAY
     Route: 048
     Dates: start: 20120611
  2. CARELOAD [Concomitant]
     Indication: PULMONARY HYPERTENSION
     Dosage: 120MCG TWICE PER DAY
     Route: 048
  3. CLARITH [Concomitant]
     Indication: ATYPICAL MYCOBACTERIAL INFECTION
     Dosage: 200MG PER DAY
     Route: 048
  4. CLARITH [Concomitant]
     Dosage: 200MG PER DAY
     Route: 048

REACTIONS (3)
  - Visual field defect [Recovered/Resolved]
  - Hypotension [Unknown]
  - Orthostatic hypotension [Unknown]
